FAERS Safety Report 15379192 (Version 1)
Quarter: 2018Q3

REPORT INFORMATION
  Report Type: Spontaneous
  Country: IT (occurrence: IT)
  Receive Date: 20180913
  Receipt Date: 20180913
  Transmission Date: 20181010
  Serious: Yes (Hospitalization, Disabling, Other)
  Sender: FDA-Public Use
  Company Number: IT-MYLANLABS-2018M1065739

PATIENT
  Age: 57 Year
  Sex: Female

DRUGS (5)
  1. EPIRUBICIN [Suspect]
     Active Substance: EPIRUBICIN
     Indication: BREAST CANCER FEMALE
     Dosage: 12 CYCLES
     Route: 042
  2. CYCLOPHOSPHAMIDE. [Suspect]
     Active Substance: CYCLOPHOSPHAMIDE
     Indication: BREAST CANCER FEMALE
     Dosage: 12 CYCLES
     Route: 042
  3. TRASTUZUMAB. [Suspect]
     Active Substance: TRASTUZUMAB
     Indication: BREAST CANCER FEMALE
     Route: 042
  4. CHLORHEXIDINE W/ISOPROPANOL [Concomitant]
     Indication: PROPHYLAXIS
     Dosage: SINGLE?USE APPLICATOR
     Route: 061
  5. FLUOROURACIL. [Suspect]
     Active Substance: FLUOROURACIL
     Indication: BREAST CANCER FEMALE
     Dosage: 12 CYCLES
     Route: 042

REACTIONS (8)
  - Staphylococcal infection [Unknown]
  - Sepsis [Unknown]
  - Gait apraxia [Not Recovered/Not Resolved]
  - Dislocation of vertebra [Recovering/Resolving]
  - Gait disturbance [Recovering/Resolving]
  - Muscle disorder [Not Recovered/Not Resolved]
  - Spinal cord compression [Recovering/Resolving]
  - Intervertebral discitis [Recovering/Resolving]
